FAERS Safety Report 7560314-3 (Version None)
Quarter: 2011Q2

REPORT INFORMATION
  Report Type: 
  Country: None (occurrence: None)
  Receive Date: 20110621
  Receipt Date: 20110608
  Transmission Date: 20111010
  Serious: Yes (Hospitalization, Other)
  Sender: FDA-Public Use
  Company Number: CA-JNJFOC-20110405850

PATIENT
  Sex: Female
  Weight: 53 kg

DRUGS (4)
  1. REMICADE [Suspect]
     Indication: CROHN'S DISEASE
     Route: 042
     Dates: start: 20080402
  2. REMICADE [Suspect]
     Route: 042
     Dates: start: 20080402
  3. REMICADE [Suspect]
     Indication: ANKYLOSING SPONDYLITIS
     Dosage: LAST INFUSION RECEIVED PRIOR TO EVENT
     Route: 042
  4. REMICADE [Suspect]
     Dosage: LAST INFUSION RECEIVED PRIOR TO EVENT
     Route: 042

REACTIONS (1)
  - BREAST CANCER [None]
